FAERS Safety Report 4524405-3 (Version None)
Quarter: 2004Q4

REPORT INFORMATION
  Report Type: 
  Country: None (occurrence: None)
  Receive Date: 20041123
  Receipt Date: 20040401
  Transmission Date: 20050328
  Serious: Yes (Hospitalization)
  Sender: FDA-Public Use
  Company Number: US-JNJFOC-20031200667

PATIENT
  Age: 32 Year
  Sex: Male
  Weight: 91.6266 kg

DRUGS (2)
  1. PROPULSID [Suspect]
     Indication: GASTROOESOPHAGEAL REFLUX DISEASE
     Dosage: 10 MG
     Dates: start: 19950901, end: 19951201
  2. LOSARTAN (LOSARTAN) [Concomitant]

REACTIONS (6)
  - CARDIOMEGALY [None]
  - CHEST PAIN [None]
  - DYSPNOEA [None]
  - MEMORY IMPAIRMENT [None]
  - PAIN [None]
  - PROSTATITIS [None]
